FAERS Safety Report 4864948-6 (Version None)
Quarter: 2005Q4

REPORT INFORMATION
  Report Type: 
  Country: None (occurrence: None)
  Receive Date: 20051219
  Receipt Date: 20051206
  Transmission Date: 20060501
  Serious: Yes (Life-Threatening, Hospitalization)
  Sender: FDA-Public Use
  Company Number: 220122

PATIENT
  Age: 71 Year
  Sex: Female

DRUGS (10)
  1. RITUXAN [Suspect]
     Indication: MANTLE CELL LYMPHOMA
     Dosage: 375 MG/M2, Q28D, INTRAVENOUS
     Route: 042
     Dates: start: 20040927, end: 20050317
  2. FLUDARABINE PHOSPHATE [Suspect]
     Indication: MANTLE CELL LYMPHOMA
     Dosage: 25 MG/M2, Q28D, INTRAVENOUS
     Route: 042
     Dates: start: 20040927, end: 20050311
  3. NORVASC [Concomitant]
  4. ATENOLOL [Concomitant]
  5. DIOVAN [Concomitant]
  6. HCTZ (HYDROCHLOROTHIAZIDE) [Concomitant]
  7. MULTIVITAM (MULTIVITAMINS NOS) [Concomitant]
  8. GLUCOSAMINE (GLUCOSAMINE) [Concomitant]
  9. FOLIC ACID [Concomitant]
  10. PREDNISONE [Concomitant]

REACTIONS (8)
  - ANISOCYTOSIS [None]
  - APLASTIC ANAEMIA [None]
  - BONE MARROW FAILURE [None]
  - HYPOCHROMASIA [None]
  - POIKILOCYTOSIS [None]
  - RED BLOOD CELL COUNT DECREASED [None]
  - UROSEPSIS [None]
  - WHITE BLOOD CELL COUNT DECREASED [None]
